FAERS Safety Report 23134162 (Version 1)
Quarter: 2023Q4

REPORT INFORMATION
  Report Type: Spontaneous
  Country: DE (occurrence: DE)
  Receive Date: 20231101
  Receipt Date: 20231101
  Transmission Date: 20240109
  Serious: Yes (Other)
  Sender: FDA-Public Use
  Company Number: DE-UCBSA-2023049942

PATIENT
  Age: 24 Year
  Sex: Male

DRUGS (2)
  1. LEVETIRACETAM [Suspect]
     Active Substance: LEVETIRACETAM
     Indication: Product used for unknown indication
     Dosage: 1000 MILLIGRAM,QD,(1000 MILLIGRAM/DAY)
     Route: 065
     Dates: start: 2018, end: 202105
  2. LAMOTRIGINE [Suspect]
     Active Substance: LAMOTRIGINE
     Indication: Product used for unknown indication
     Dosage: 200 MILLIGRAM,QD,(200 MILLIGRAM/DAY)
     Route: 065

REACTIONS (3)
  - Seizure [Unknown]
  - Nightmare [Unknown]
  - Irritability [Unknown]
